FAERS Safety Report 4353321-5 (Version None)
Quarter: 2004Q2

REPORT INFORMATION
  Report Type: 
  Country: None (occurrence: None)
  Receive Date: 20040504
  Receipt Date: 20040504
  Transmission Date: 20050107
  Serious: Yes (Life-Threatening, Hospitalization)
  Sender: FDA-Public Use
  Company Number: None

PATIENT
  Age: 16 Year
  Sex: Female
  Weight: 58.9676 kg

DRUGS (2)
  1. ZOLOFT [Suspect]
     Indication: ANXIETY
     Dosage: ONCE DAILY AT NIGHT ORAL
     Route: 048
     Dates: start: 20031227, end: 20040308
  2. ZOLOFT [Suspect]
     Indication: DEPRESSION
     Dosage: ONCE DAILY AT NIGHT ORAL
     Route: 048
     Dates: start: 20031227, end: 20040308

REACTIONS (10)
  - ANGER [None]
  - ANOREXIA [None]
  - DEPRESSION [None]
  - FATIGUE [None]
  - INTENTIONAL OVERDOSE [None]
  - MOOD ALTERED [None]
  - PARADOXICAL DRUG REACTION [None]
  - PERSONALITY CHANGE [None]
  - SUICIDE ATTEMPT [None]
  - TREMOR [None]
